FAERS Safety Report 23379199 (Version 1)
Quarter: 2024Q1

REPORT INFORMATION
  Report Type: Spontaneous
  Country: US (occurrence: None)
  Receive Date: 20240107
  Receipt Date: 20240107
  Transmission Date: 20240409
  Serious: Yes (Hospitalization)
  Sender: FDA-Public Use
  Company Number: None

PATIENT
  Age: 71 Year
  Sex: Female
  Weight: 85.5 kg

DRUGS (10)
  1. PROLIA [Suspect]
     Active Substance: DENOSUMAB
     Indication: Osteoporosis
     Dates: start: 20210224, end: 20230919
  2. AMLODIPINE [Concomitant]
     Active Substance: AMLODIPINE BESYLATE
  3. PROLIA [Concomitant]
     Active Substance: DENOSUMAB
  4. DULOXETINE [Concomitant]
     Active Substance: DULOXETINE
  5. PRAMIPEXOLE [Concomitant]
     Active Substance: PRAMIPEXOLE\PRAMIPEXOLE DIHYDROCHLORIDE
  6. REPATHA [Concomitant]
     Active Substance: EVOLOCUMAB
  7. TEMAZEPAM [Concomitant]
     Active Substance: TEMAZEPAM
  8. VITAMIN D3 [Concomitant]
     Active Substance: CHOLECALCIFEROL
  9. CALCIUM [Concomitant]
     Active Substance: CALCIUM
  10. VITAMIN B12 [Concomitant]
     Active Substance: CYANOCOBALAMIN

REACTIONS (3)
  - Iatrogenic injury [None]
  - Impaired healing [None]
  - Osteonecrosis of jaw [None]

NARRATIVE: CASE EVENT DATE: 20231017
